FAERS Safety Report 13543502 (Version 4)
Quarter: 2017Q2

REPORT INFORMATION
  Report Type: Report from Study
  Country: None (occurrence: ES)
  Receive Date: 20170515
  Receipt Date: 20170622
  Transmission Date: 20170830
  Serious: Yes (Hospitalization)
  Sender: FDA-Public Use
  Company Number: ES-ABBVIE-17K-144-1972161-00

PATIENT
  Sex: Female
  Weight: 31 kg

DRUGS (1)
  1. DUODOPA [Suspect]
     Active Substance: CARBIDOPA\LEVODOPA
     Indication: PARKINSON^S DISEASE
     Dosage: 2 ML/H
     Route: 050
     Dates: start: 20140410

REACTIONS (2)
  - Malnutrition [Recovering/Resolving]
  - Decreased appetite [Recovering/Resolving]
